FAERS Safety Report 13658689 (Version 1)
Quarter: 2017Q2

REPORT INFORMATION
  Report Type: Spontaneous
  Country: US (occurrence: US)
  Receive Date: 20170615
  Receipt Date: 20170615
  Transmission Date: 20170830
  Serious: Yes (Death, Hospitalization)
  Sender: FDA-Public Use
  Company Number: None

PATIENT
  Age: 58 Year
  Sex: Female
  Weight: 47.7 kg

DRUGS (11)
  1. METOPROLOL. [Concomitant]
     Active Substance: METOPROLOL
  2. ADIVAN [Concomitant]
  3. ZOFRAN [Concomitant]
     Active Substance: ONDANSETRON HYDROCHLORIDE
  4. TAXOL [Suspect]
     Active Substance: PACLITAXEL
     Dates: end: 20100930
  5. CLONIDINE. [Concomitant]
     Active Substance: CLONIDINE
  6. COLACE [Concomitant]
     Active Substance: DOCUSATE SODIUM
  7. VICODIN [Concomitant]
     Active Substance: ACETAMINOPHEN\HYDROCODONE BITARTRATE
  8. DECADRON [Concomitant]
     Active Substance: DEXAMETHASONE
  9. RISPERDAL [Concomitant]
     Active Substance: RISPERIDONE
  10. CARBOPLATIN. [Suspect]
     Active Substance: CARBOPLATIN
     Dates: end: 20100930
  11. AMLODIPINE [Concomitant]
     Active Substance: AMLODIPINE BESYLATE

REACTIONS (6)
  - Sepsis [None]
  - Urinary tract infection [None]
  - Unresponsive to stimuli [None]
  - Hypotension [None]
  - Disseminated intravascular coagulation [None]
  - Lactic acidosis [None]

NARRATIVE: CASE EVENT DATE: 20101008
